FAERS Safety Report 16264898 (Version 2)
Quarter: 2019Q2

REPORT INFORMATION
  Report Type: Spontaneous
  Country: BR (occurrence: BR)
  Receive Date: 20190502
  Receipt Date: 20190507
  Transmission Date: 20190711
  Serious: Yes (Other)
  Sender: FDA-Public Use
  Company Number: BR-009507513-1904BRA012931

PATIENT
  Age: 70 Year
  Sex: Male

DRUGS (1)
  1. KEYTRUDA [Suspect]
     Active Substance: PEMBROLIZUMAB
     Indication: MALIGNANT MELANOMA
     Dosage: UNK
     Dates: start: 201901

REACTIONS (5)
  - Nervous system disorder [Unknown]
  - Encephalitis [Unknown]
  - Mood altered [Recovering/Resolving]
  - Aggression [Recovering/Resolving]
  - CSF lymphocyte count increased [Unknown]

NARRATIVE: CASE EVENT DATE: 2019
